FAERS Safety Report 20869116 (Version 1)
Quarter: 2022Q2

REPORT INFORMATION
  Report Type: Spontaneous
  Country: US (occurrence: None)
  Receive Date: 20220524
  Receipt Date: 20220524
  Transmission Date: 20220721
  Serious: Yes (Other)
  Sender: FDA-Public Use
  Company Number: None

PATIENT
  Age: 37 Year
  Sex: Female
  Weight: 65.32 kg

DRUGS (2)
  1. GLATOPA [Suspect]
     Active Substance: GLATIRAMER ACETATE
     Indication: Radiologically isolated syndrome
     Dosage: FREQUENCY : DAILY;?
     Dates: start: 20190106, end: 20190202
  2. VITAMIN D [Concomitant]

REACTIONS (4)
  - Palpitations [None]
  - Chest discomfort [None]
  - Dyspnoea [None]
  - Rash [None]

NARRATIVE: CASE EVENT DATE: 20190215
